FAERS Safety Report 12999929 (Version 1)
Quarter: 2016Q4

REPORT INFORMATION
  Report Type: Report from Study
  Country: None (occurrence: US)
  Receive Date: 20161205
  Receipt Date: 20161205
  Transmission Date: 20170207
  Serious: Yes (Other)
  Sender: FDA-Public Use
  Company Number: US-ABBVIE-16P-163-1799696-00

PATIENT
  Age: 44 Year
  Sex: Female

DRUGS (1)
  1. VIEKIRA PAK [Suspect]
     Active Substance: DASABUVIR\OMBITASVIR\PARITAPREVIR\RITONAVIR
     Indication: MATERNAL EXPOSURE TIMING UNSPECIFIED
     Dosage: 12.5/70/50/250MG
     Route: 064
     Dates: start: 20160803, end: 20161031

REACTIONS (2)
  - Foetal exposure during pregnancy [Not Recovered/Not Resolved]
  - Abortion spontaneous [Unknown]

NARRATIVE: CASE EVENT DATE: 20161103
